FAERS Safety Report 6682651-7 (Version None)
Quarter: 2010Q2

REPORT INFORMATION
  Report Type: 
  Country: None (occurrence: None)
  Receive Date: 20100415
  Receipt Date: 20100413
  Transmission Date: 20101027
  Serious: Yes (Death)
  Sender: FDA-Public Use
  Company Number: JP-B.I. PHARMACEUTICALS,INC./RIDGEFIELD-2010-BP-04159NB

PATIENT
  Age: 58 Year
  Sex: Male

DRUGS (4)
  1. MICOMBI COMBINATION [Suspect]
     Indication: HYPERTENSION
     Dosage: 40/12.5 MG
     Route: 048
     Dates: start: 20100325, end: 20100407
  2. DIAMOX SRC [Concomitant]
     Route: 065
  3. AMLODIPINE [Concomitant]
     Dosage: 5 MG
     Route: 048
  4. TAKEPRON [Concomitant]
     Dosage: 15 MG
     Route: 048

REACTIONS (1)
  - BRAIN STEM HAEMORRHAGE [None]
